FAERS Safety Report 8285543 (Version 4)
Quarter: 2012Q4

REPORT INFORMATION
  Report Type: Report from Study
  Country: GB (occurrence: GB)
  Receive Date: 20111213
  Receipt Date: 20120926
  Transmission Date: 20130627
  Serious: Yes (Other)
  Sender: FDA-Public Use
  Company Number: GB-ROCHE-1017786

PATIENT
  Age: 53 Year
  Sex: Male
  Weight: 75 kg

DRUGS (8)
  1. MABTHERA [Suspect]
     Indication: DIFFUSE LARGE B-CELL LYMPHOMA
     Dosage: volume of last dose: 710 ml, dose concentration of last dose taken: 1 mg/ml, most recent dose on 18
     Route: 042
     Dates: start: 20111027
  2. CYCLOPHOSPHAMIDE [Suspect]
     Indication: DIFFUSE LARGE B-CELL LYMPHOMA
     Dosage: most recent dose on 18 Nov 2011, last dose taken: 1400 mg
     Route: 042
     Dates: start: 20111028
  3. DOXORUBICIN/DOXORUBICIN HYDROCHLORIDE [Suspect]
     Indication: DIFFUSE LARGE B-CELL LYMPHOMA
     Dosage: most recent dose on 18 Nov 2011, last dose taken: 94 mg
     Route: 042
     Dates: start: 20111028
  4. VINCRISTINE [Suspect]
     Indication: DIFFUSE LARGE B-CELL LYMPHOMA
     Dosage: most recent dose on 18 Nov 2011, last dose taken: 2 mg
     Route: 042
     Dates: start: 20111028
  5. PREDNISONE [Suspect]
     Indication: DIFFUSE LARGE B-CELL LYMPHOMA
     Dosage: most recent dose on 22 Nov 2011, last dose taken: 100 mg
     Route: 048
     Dates: start: 20111028
  6. OMEPRAZOLE [Concomitant]
     Indication: EPIGASTRIC DISCOMFORT
     Route: 065
     Dates: start: 20120120
  7. FLUCONAZOLE [Concomitant]
     Route: 065
     Dates: start: 20111216
  8. ENOXAPARIN [Concomitant]
     Indication: OEDEMA PERIPHERAL
     Route: 065
     Dates: start: 20111128

REACTIONS (1)
  - Venous thrombosis [Not Recovered/Not Resolved]
